FAERS Safety Report 6973632-4 (Version None)
Quarter: 2010Q3

REPORT INFORMATION
  Report Type: 
  Country: None (occurrence: None)
  Receive Date: 20100909
  Receipt Date: 20100826
  Transmission Date: 20110219
  Serious: Yes (Hospitalization)
  Sender: FDA-Public Use
  Company Number: US-ELI_LILLY_AND_COMPANY-US201008006771

PATIENT
  Sex: Female

DRUGS (23)
  1. FORTEO [Suspect]
     Indication: OSTEOPOROSIS
     Dosage: 20 UG, DAILY (1/D)
     Dates: start: 20100706
  2. BENTYL [Concomitant]
     Dosage: 20 UG, AS NEEDED
  3. ELAVIL [Concomitant]
     Dosage: 20 MG, EACH EVENING
  4. ZOCOR [Concomitant]
     Dosage: 40 MG, EACH EVENING
  5. TRICOR [Concomitant]
     Dosage: 145 MG, EACH EVENING
  6. REGLAN [Concomitant]
     Dosage: 20 MG, 4/D
  7. K-DUR [Concomitant]
     Dosage: 10 MEQ, DAILY (1/D)
  8. CARAFATE [Concomitant]
     Dosage: 1 MG, 2/D
  9. SULFAZINE [Concomitant]
     Dosage: 1000 MG, 2/D
  10. METOPROLOL TARTRATE [Concomitant]
     Dosage: 12.5 MG, DAILY (1/D)
  11. XANAX [Concomitant]
     Dosage: 2 MG, 3/D
  12. STADOL [Concomitant]
     Dosage: UNK, AS NEEDED
  13. NITRO                              /00003201/ [Concomitant]
     Dosage: 0.4 MG, OTHER
  14. TRAZODONE HCL [Concomitant]
     Dosage: 150 MG, EACH EVENING
  15. NAMENDA [Concomitant]
     Dosage: 10 MG, 2/D
  16. ARICEPT [Concomitant]
     Dosage: 10 MG, DAILY (1/D)
  17. FOLIC ACID [Concomitant]
     Dosage: 1 MG, DAILY (1/D)
  18. CENTRUM SILVER [Concomitant]
     Dosage: UNK, DAILY (1/D)
  19. IRON [Concomitant]
     Dosage: 65 MG, DAILY (1/D)
  20. CALCIUM +VIT D [Concomitant]
     Dosage: 600 MG, 2/D
  21. SYNTHROID [Concomitant]
     Dosage: 125 UG, DAILY (1/D)
  22. VICODIN [Concomitant]
     Dosage: UNK, OTHER
  23. LASIX [Concomitant]
     Dosage: 60 MG, DAILY (1/D)

REACTIONS (4)
  - MALAISE [None]
  - NAUSEA [None]
  - URINARY TRACT INFECTION [None]
  - VOMITING [None]
